FAERS Safety Report 14746913 (Version 2)
Quarter: 2018Q2

REPORT INFORMATION
  Report Type: Spontaneous
  Country: US (occurrence: US)
  Receive Date: 20180411
  Receipt Date: 20180417
  Transmission Date: 20180711
  Serious: Yes (Other)
  Sender: FDA-Public Use
  Company Number: US-JNJFOC-20180400807

PATIENT
  Sex: Female

DRUGS (2)
  1. NEUTROGENA HEALTHY SKIN MAKEUP SUNSCREEN BROAD SPECTRUM SPF20 - CLASSIC IVORY 10 [Suspect]
     Active Substance: TITANIUM DIOXIDE
     Indication: PRODUCT USED FOR UNKNOWN INDICATION
     Route: 061
  2. NEUTROGENA HEALTHY SKIN ANTI-AGING PERFECTOR SUNSCREEN BROAD SPECTRUM SPF 20 FAIR TO LIGHT 20 [Suspect]
     Active Substance: OCTINOXATE\OCTISALATE
     Indication: PRODUCT USED FOR UNKNOWN INDICATION
     Route: 061

REACTIONS (1)
  - Hypersensitivity [Unknown]
